FAERS Safety Report 5807777-9 (Version None)
Quarter: 2008Q3

REPORT INFORMATION
  Report Type: 
  Country: None (occurrence: None)
  Receive Date: 20080711
  Receipt Date: 20080701
  Transmission Date: 20090109
  Serious: Yes (Death)
  Sender: FDA-Public Use
  Company Number: DE-PFIZER INC-2008055082

PATIENT

DRUGS (23)
  1. GENOTROPIN [Suspect]
     Indication: HYPOPITUITARISM
     Dosage: DAILY DOSE:.3MG
     Route: 058
  2. HYDROCORTISONE [Concomitant]
     Dosage: DAILY DOSE:30MG
     Dates: start: 19960701, end: 20070223
  3. HYDROCORTISONE [Concomitant]
     Dosage: DAILY DOSE:35MG
  4. THYROXIN [Concomitant]
     Indication: HYPOTHYROIDISM
     Dosage: DAILY DOSE:250MCG
     Dates: start: 19960701
  5. PHENYTOIN [Concomitant]
     Dosage: FREQ:AS NEEDED
  6. CALCIUM [Concomitant]
     Dosage: DAILY DOSE:500MG
     Dates: start: 20000701
  7. FUROSEMIDE [Concomitant]
     Indication: OEDEMA
     Dates: start: 20000701
  8. VENOSTASIN [Concomitant]
     Indication: PHLEBITIS
     Dosage: DAILY DOSE:1GRAM
     Dates: start: 20000701
  9. VITAMIN D3 [Concomitant]
     Dosage: DAILY DOSE:400MG-FREQ:AS NEEDED
     Dates: start: 20000701
  10. MALIASIN [Concomitant]
     Dates: start: 20020701
  11. TESTOSTERONE [Concomitant]
     Indication: HYPOGONADISM
     Dosage: DAILY DOSE:50MG
     Dates: start: 20030701
  12. TESTOSTERONE [Concomitant]
     Dosage: DAILY DOSE:50MG
     Dates: start: 20050204
  13. GLUCOBAY [Concomitant]
     Indication: DIABETES MELLITUS
     Dosage: DAILY DOSE:50MG
     Dates: start: 20040914
  14. GLUCOBAY [Concomitant]
     Dosage: DAILY DOSE:100MG
     Dates: start: 20050204
  15. GLUCOBAY [Concomitant]
     Dosage: DAILY DOSE:50MG
     Dates: start: 20070224
  16. MAGNESIUM [Concomitant]
     Dosage: DAILY DOSE:40MG
     Dates: start: 20050204
  17. BACLOFEN [Concomitant]
     Dosage: DAILY DOSE:10MG
     Dates: start: 20050909
  18. IDEOS [Concomitant]
     Indication: OSTEOPOROSIS
     Dosage: DAILY DOSE:2.5MG
     Dates: start: 20050909
  19. PHENYTOIN [Concomitant]
     Indication: EPILEPSY
     Dosage: DAILY DOSE:600MG
     Dates: start: 20050909
  20. METFORMIN [Concomitant]
     Indication: DIABETES MELLITUS
     Dosage: DAILY DOSE:850MG
     Dates: start: 20061101
  21. NEXIUM [Concomitant]
     Indication: PEPTIC ULCER
     Dosage: DAILY DOSE:40MG
     Dates: start: 20070201
  22. KALINOR [Concomitant]
     Indication: HYPOKALAEMIA
     Dates: start: 20070412
  23. LAMICTAL [Concomitant]
     Indication: CONVULSION
     Dates: start: 20070412

REACTIONS (1)
  - DEATH [None]
